FAERS Safety Report 14651366 (Version 1)
Quarter: 2018Q1

REPORT INFORMATION
  Report Type: Spontaneous
  Country: US (occurrence: US)
  Receive Date: 20180316
  Receipt Date: 20180316
  Transmission Date: 20180509
  Serious: Yes (Hospitalization)
  Sender: FDA-Public Use
  Company Number: None

PATIENT
  Sex: Male

DRUGS (5)
  1. IRON, PREDNISONE, FLORASTOR, ALBUTEROL, MELATONIN, B COMPLEX, VIT B12 [Concomitant]
  2. ZYTIGA [Suspect]
     Active Substance: ABIRATERONE ACETATE
     Indication: NEOPLASM MALIGNANT
     Dosage: ?          OTHER FREQUENCY:4 TABS DAILY;?
     Route: 048
     Dates: start: 20180118
  3. GLIMEPIRIDE, NIASPAN, CALCIUM 600, CIPROFLOXACN, AMIODARONE [Concomitant]
  4. JANUVIA, [Concomitant]
  5. ZOLADEX [Suspect]
     Active Substance: GOSERELIN ACETATE
     Indication: NEOPLASM MALIGNANT
     Dosage: ?          OTHER FREQUENCY:EVERY 90 DAYS;?
     Route: 058
     Dates: start: 20151103

REACTIONS (2)
  - Hospitalisation [None]
  - Drug dose omission [None]
